FAERS Safety Report 9309007 (Version 2)
Quarter: 2014Q2

REPORT INFORMATION
  Report Type: Spontaneous
  Country: US (occurrence: US)
  Receive Date: 20130524
  Receipt Date: 20140512
  Transmission Date: 20141212
  Serious: Yes (Death)
  Sender: FDA-Public Use
  Company Number: US-OPTIMER-20130207

PATIENT
  Age: 78 Year
  Sex: Male

DRUGS (1)
  1. FIDAXOMICIN [Suspect]
     Indication: CLOSTRIDIUM DIFFICILE COLITIS
     Dosage: UNK
     Dates: start: 20130215, end: 20130216

REACTIONS (4)
  - Death [Fatal]
  - Blood creatinine increased [Unknown]
  - White blood cell count increased [Unknown]
  - Treatment failure [Unknown]
